FAERS Safety Report 10175038 (Version 2)
Quarter: 2014Q2

REPORT INFORMATION
  Report Type: Report from Study
  Country: US (occurrence: US)
  Receive Date: 20140515
  Receipt Date: 20140604
  Transmission Date: 20141212
  Serious: Yes (Death)
  Sender: FDA-Public Use
  Company Number: US-MPIJNJ-2014MPI001415

PATIENT
  Age: 59 Year
  Sex: Male
  Weight: 97 kg

DRUGS (13)
  1. VELCADE [Suspect]
     Indication: PLASMA CELL MYELOMA
     Dosage: 1.3 MG/M2, UNK
     Route: 058
     Dates: start: 20140426, end: 20140429
  2. DEXAMETHASONE [Suspect]
     Indication: PROPHYLAXIS
     Dosage: 4 MG, UNK
     Dates: start: 20140426
  3. ADDERALL [Concomitant]
     Dosage: 30 MG, BID, AS NEEDED
  4. ALLOPURINOL [Concomitant]
     Indication: PROPHYLAXIS
     Dosage: 200 MG, QD
  5. XANAX [Concomitant]
     Indication: ANXIETY
     Dosage: 1 MG, TID, AS NEEDED
  6. ATIVAN [Concomitant]
     Dosage: 0.5 MG, UNK
  7. BACLOFEN [Concomitant]
     Dosage: 10 MG, TID, AS NEEDED
  8. PHENERGAN                          /00033001/ [Concomitant]
     Dosage: 25 MG, Q4H, PRN
  9. PROVIGIL [Concomitant]
     Dosage: 100 MG, QD
  10. TOPROL [Concomitant]
     Dosage: 100 MG, QD
  11. VALACYCLOVIR HYDROCHLORIDE [Concomitant]
     Indication: PROPHYLAXIS
     Dosage: 500 MG, QD
  12. ZOFRAN                             /00955301/ [Concomitant]
     Indication: NAUSEA
     Dosage: 8 MG, Q8HR AS NEEDED
  13. SYNTHROID [Concomitant]
     Dosage: 50 ?G, QD

REACTIONS (1)
  - Death [Fatal]
